FAERS Safety Report 8759240 (Version 1)
Quarter: 2012Q4

REPORT INFORMATION
  Report Type: 
  Country: BR (occurrence: BR)
  Receive Date: 20120829
  Receipt Date: 20120829
  Transmission Date: 20130627
  Serious: Yes (Hospitalization)
  Sender: FDA-Public Use
  Company Number: BR-ASTRAZENECA-2012SE61042

PATIENT
  Age: 40 Year
  Sex: Female
  Weight: 69 kg

DRUGS (3)
  1. SELOZOK [Suspect]
     Indication: ARRHYTHMIA
     Route: 048
     Dates: start: 2008, end: 2008
  2. SELOZOK [Suspect]
     Indication: ARRHYTHMIA
     Route: 048
     Dates: start: 2008
  3. ZOLADEX [Suspect]
     Indication: RHABDOMYOMA
     Route: 058
     Dates: start: 20120125, end: 20120125

REACTIONS (7)
  - Uterine leiomyoma [Recovered/Resolved]
  - Swelling [Recovering/Resolving]
  - Amenorrhoea [Not Recovered/Not Resolved]
  - Blood pressure increased [Not Recovered/Not Resolved]
  - Heart rate decreased [Recovered/Resolved]
  - Tachycardia [Unknown]
  - Weight increased [Not Recovered/Not Resolved]
